FAERS Safety Report 6218469-9 (Version None)
Quarter: 2009Q2

REPORT INFORMATION
  Report Type: 
  Country: None (occurrence: None)
  Receive Date: 20090608
  Receipt Date: 20090601
  Transmission Date: 20091009
  Serious: Yes (Hospitalization)
  Sender: FDA-Public Use
  Company Number: B0573719A

PATIENT
  Sex: Female

DRUGS (1)
  1. ALKERAN [Suspect]
     Indication: RETINOBLASTOMA BILATERAL
     Route: 013
     Dates: start: 20090421, end: 20090421

REACTIONS (5)
  - ALOPECIA [None]
  - FLUID INTAKE RESTRICTION [None]
  - LIP ULCERATION [None]
  - PANCYTOPENIA [None]
  - STOMATITIS [None]
